FAERS Safety Report 21174547 (Version 3)
Quarter: 2023Q1

REPORT INFORMATION
  Report Type: Spontaneous
  Country: US (occurrence: None)
  Receive Date: 20220805
  Receipt Date: 20230321
  Transmission Date: 20230418
  Serious: No
  Sender: FDA-Public Use
  Company Number: US-ROCHE-3141095

PATIENT
  Age: 81 Year
  Sex: Female

DRUGS (4)
  1. VABYSMO [Suspect]
     Active Substance: FARICIMAB-SVOA
     Indication: Neovascular age-related macular degeneration
     Route: 065
     Dates: start: 20220314
  2. VABYSMO [Suspect]
     Active Substance: FARICIMAB-SVOA
     Route: 065
     Dates: start: 20220418
  3. VABYSMO [Suspect]
     Active Substance: FARICIMAB-SVOA
     Route: 065
     Dates: start: 20220523
  4. VABYSMO [Suspect]
     Active Substance: FARICIMAB-SVOA
     Route: 065
     Dates: start: 20220627

REACTIONS (2)
  - Drug ineffective [Unknown]
  - No adverse event [Unknown]
